FAERS Safety Report 10240078 (Version 1)
Quarter: 2014Q2

REPORT INFORMATION
  Report Type: Report from Study
  Country: US (occurrence: US)
  Receive Date: 20140617
  Receipt Date: 20140617
  Transmission Date: 20141212
  Serious: Yes (Hospitalization)
  Sender: FDA-Public Use
  Company Number: US-ROCHE-1417507

PATIENT
  Age: 51 Year
  Sex: Male
  Weight: 113 kg

DRUGS (12)
  1. METHOTREXATE [Concomitant]
     Route: 065
     Dates: start: 201201
  2. FOLIC ACID [Concomitant]
     Route: 065
     Dates: start: 201107
  3. TRAMADOL HCL [Concomitant]
     Route: 065
     Dates: start: 2006
  4. METFORMIN HYDROCHLORIDE [Concomitant]
     Route: 065
     Dates: start: 201201
  5. OXYCONTIN CR [Concomitant]
     Route: 065
     Dates: start: 2004
  6. SYMBICORT [Concomitant]
     Route: 065
     Dates: start: 201106
  7. DOXEPIN [Concomitant]
     Route: 065
     Dates: start: 201108
  8. METHYLPREDNISOLONE [Concomitant]
     Route: 065
     Dates: start: 2010
  9. LISINOPRIL/HCTZ [Concomitant]
     Route: 065
     Dates: start: 2012
  10. RITUXIMAB [Suspect]
     Indication: RHEUMATOID ARTHRITIS
     Route: 042
     Dates: start: 20130207
  11. RITUXIMAB [Suspect]
     Route: 042
  12. RITUXIMAB [Suspect]
     Route: 042
     Dates: start: 20130221, end: 20130221

REACTIONS (1)
  - Pericarditis [Recovered/Resolved]
